FAERS Safety Report 13887796 (Version 3)
Quarter: 2017Q3

REPORT INFORMATION
  Report Type: Report from Study
  Country: CA (occurrence: CA)
  Receive Date: 20170821
  Receipt Date: 20170915
  Transmission Date: 20171127
  Serious: Yes (Other)
  Sender: FDA-Public Use
  Company Number: CA-REGENERON PHARMACEUTICALS, INC.-2017-20361

PATIENT

DRUGS (1)
  1. EYLEA [Suspect]
     Active Substance: AFLIBERCEPT
     Indication: DIABETIC RETINAL OEDEMA
     Dosage: DOSE NOT PROVIDED. PATIENT RECEIVED ONLY ONE INJECTION PRIOR EVENT.
     Dates: start: 201505

REACTIONS (2)
  - Eye haemorrhage [Unknown]
  - Visual impairment [Unknown]
